FAERS Safety Report 21960899 (Version 11)
Quarter: 2023Q2

REPORT INFORMATION
  Report Type: Spontaneous
  Country: AT (occurrence: AT)
  Receive Date: 20230207
  Receipt Date: 20230606
  Transmission Date: 20230722
  Serious: Yes (Hospitalization, Other)
  Sender: FDA-Public Use
  Company Number: AT-ROCHE-3271210

PATIENT
  Age: 67 Year
  Sex: Male
  Weight: 58 kg

DRUGS (51)
  1. MELPHALAN [Suspect]
     Active Substance: MELPHALAN
     Indication: Mantle cell lymphoma
     Dosage: UNK(DRUG SEPARATE DOSAGE NUMBER 1)
     Route: 065
  2. MELPHALAN [Suspect]
     Active Substance: MELPHALAN
     Dosage: UNK(DRUG SEPARATE DOSAGE NUMBER 1)
     Route: 065
  3. CARMUSTINE [Suspect]
     Active Substance: CARMUSTINE
     Indication: Mantle cell lymphoma
     Dosage: (DRUG SEPARATE DOSAGE NUMBER 1 )
     Route: 065
  4. CARMUSTINE [Suspect]
     Active Substance: CARMUSTINE
     Dosage: (DRUG SEPARATE DOSAGE NUMBER 1 )
     Route: 065
  5. CISPLATIN [Suspect]
     Active Substance: CISPLATIN
     Indication: Mantle cell lymphoma
     Dosage: (DRUG SEPARATE DOSAGE NUMBER 1 )
     Route: 065
  6. CISPLATIN [Suspect]
     Active Substance: CISPLATIN
     Dosage: (DRUG SEPARATE DOSAGE NUMBER 1 )
     Route: 065
  7. CISPLATIN [Suspect]
     Active Substance: CISPLATIN
     Dosage: (DRUG SEPARATE DOSAGE NUMBER 1 )
     Route: 065
  8. CISPLATIN [Suspect]
     Active Substance: CISPLATIN
     Dosage: (DRUG SEPARATE DOSAGE NUMBER 1 )
     Route: 065
  9. CISPLATIN [Suspect]
     Active Substance: CISPLATIN
     Dosage: (DRUG SEPARATE DOSAGE NUMBER 1 )
     Route: 065
  10. CISPLATIN [Suspect]
     Active Substance: CISPLATIN
     Dosage: UNK
     Route: 065
  11. CISPLATIN [Suspect]
     Active Substance: CISPLATIN
     Dosage: UNK
     Route: 065
  12. CISPLATIN [Suspect]
     Active Substance: CISPLATIN
     Dosage: (DRUG SEPARATE DOSAGE NUMBER 1 )
     Route: 065
  13. CISPLATIN [Suspect]
     Active Substance: CISPLATIN
     Dosage: UNK
     Route: 065
  14. CISPLATIN [Suspect]
     Active Substance: CISPLATIN
     Dosage: UNK
     Route: 065
  15. CISPLATIN [Suspect]
     Active Substance: CISPLATIN
     Dosage: UNK
     Route: 065
  16. CYCLOPHOSPHAMIDE [Suspect]
     Active Substance: CYCLOPHOSPHAMIDE
     Indication: Mantle cell lymphoma
     Dosage: UNK (START DATE: SEP-2019, STOP DATE: JAN-2022, DRUG SEPARATE DOSAGE NUMBER 1 )
     Route: 065
     Dates: start: 201909, end: 202201
  17. CYCLOPHOSPHAMIDE [Suspect]
     Active Substance: CYCLOPHOSPHAMIDE
     Dosage: UNK ( DRUG SEPARATE DOSAGE NUMBER 1 )
     Route: 065
     Dates: start: 201909, end: 202201
  18. CYTARABINE [Suspect]
     Active Substance: CYTARABINE
     Indication: Mantle cell lymphoma
     Dosage: (DRUG SEPARATE DOSAGE NUMBER 1 )
     Route: 065
  19. CYTARABINE [Suspect]
     Active Substance: CYTARABINE
     Dosage: (DRUG SEPARATE DOSAGE NUMBER 1 )
     Route: 065
  20. DEXAMETHASONE [Suspect]
     Active Substance: DEXAMETHASONE
     Indication: Mantle cell lymphoma
     Dosage: UNK (DRUG SEPARATE DOSAGE NUMBER 1 )
     Route: 065
  21. DEXAMETHASONE [Suspect]
     Active Substance: DEXAMETHASONE
     Dosage: UNK (DRUG SEPARATE DOSAGE NUMBER 1 )
     Route: 065
  22. DOXORUBICIN [Suspect]
     Active Substance: DOXORUBICIN
     Indication: Mantle cell lymphoma
     Dosage: DRUG SEPARATE DOSAGE NUMBER 1
     Route: 065
     Dates: start: 201909, end: 202201
  23. DOXORUBICIN [Suspect]
     Active Substance: DOXORUBICIN
     Dosage: DRUG SEPARATE DOSAGE NUMBER 1
     Route: 065
     Dates: start: 201909, end: 202201
  24. ETOPOSIDE [Suspect]
     Active Substance: ETOPOSIDE
     Indication: Mantle cell lymphoma
     Dosage: (DRUG SEPARATE DOSAGE NUMBER 1 )
     Route: 065
  25. ETOPOSIDE [Suspect]
     Active Substance: ETOPOSIDE
     Dosage: (DRUG SEPARATE DOSAGE NUMBER 1 )
     Route: 065
  26. IMBRUVICA [Suspect]
     Active Substance: IBRUTINIB
     Indication: Mantle cell lymphoma
     Dosage: (START DATE: JUN-2022, STOP DATE: JUL-2022, DRUG SEPARATE DOSAGE NUMBER 1 )
     Route: 048
     Dates: start: 202206, end: 202207
  27. IMBRUVICA [Suspect]
     Active Substance: IBRUTINIB
     Dosage: (START DATE: JUN-2022, STOP DATE: JUL-2022, DRUG SEPARATE DOSAGE NUMBER 1 )
     Route: 048
     Dates: start: 202206, end: 202207
  28. PREDNISOLONE [Suspect]
     Active Substance: PREDNISOLONE
     Indication: Mantle cell lymphoma
     Dosage: UNK (START DATE: SEP-2019, STOP DATE: JAN-2022, DRUG SEPARATE DOSAGE NUMBER 1 )
     Route: 065
     Dates: start: 201909, end: 202201
  29. PREDNISOLONE [Suspect]
     Active Substance: PREDNISOLONE
     Dosage: UNK DRUG SEPARATE DOSAGE NUMBER 1)
     Route: 065
     Dates: start: 201909, end: 202201
  30. RITUXIMAB [Suspect]
     Active Substance: RITUXIMAB
     Indication: Mantle cell lymphoma
     Dosage: (START DATE: SEP-2019, STOP DATE: JAN-2022, DRUG SEPARATE DOSAGE NUMBER 1 )
     Route: 058
     Dates: start: 201909, end: 202201
  31. RITUXIMAB [Suspect]
     Active Substance: RITUXIMAB
     Dosage: (START DATE: SEP-2019, STOP DATE: JAN-2022, DRUG SEPARATE DOSAGE NUMBER 1 )
     Route: 058
     Dates: start: 201909, end: 202212
  32. RITUXIMAB [Suspect]
     Active Substance: RITUXIMAB
     Dosage: UNK (SOLUTION FOR INJECTION, DRUG SEPARATE DOSAGE NUMBER 1)START DATE: 2022
     Route: 065
     Dates: start: 2022, end: 202212
  33. RITUXIMAB [Suspect]
     Active Substance: RITUXIMAB
     Dosage: UNK (SOLUTION FOR INJECTION, DRUG SEPARATE DOSAGE NUMBER 1)START DATE: 2022
     Route: 058
     Dates: start: 202212
  34. VENETOCLAX [Suspect]
     Active Substance: VENETOCLAX
     Indication: Mantle cell lymphoma
     Dosage: UNK (START DATE: JUN-2022, STOP DATE: JUL-2022 )(DRUG SEPARATE DOSAGE NUMBER 1)
     Route: 048
     Dates: start: 202206, end: 202207
  35. VENETOCLAX [Suspect]
     Active Substance: VENETOCLAX
     Dosage: UNK (DRUG SEPARATE DOSAGE NUMBER 1)
     Route: 048
     Dates: start: 202206, end: 202207
  36. VENETOCLAX [Suspect]
     Active Substance: VENETOCLAX
     Indication: Mantle cell lymphoma
     Dosage: UNK (START DATE: JUN-2022, STOP DATE: JUL-2022, DRUG SEPARATE DOSAGE NUMBER 1 )
     Route: 048
     Dates: start: 202206
  37. GLOFITAMAB [Suspect]
     Active Substance: GLOFITAMAB
     Indication: Mantle cell lymphoma
     Dosage: 30 MILLIGRAM 3 TIMES A WEEK
     Route: 042
     Dates: start: 20230131, end: 20230411
  38. IBRUTINIB [Suspect]
     Active Substance: IBRUTINIB
     Indication: Mantle cell lymphoma
     Dosage: UNK (DRUG SEPARATE DOSAGE NUMBER 1)
     Route: 048
     Dates: start: 202206, end: 202207
  39. VINCRISTINE [Suspect]
     Active Substance: VINCRISTINE
     Indication: Mantle cell lymphoma
     Dosage: START DATE: SEP-2019, STOP DATE: JAN-2022, DRUG SEPARATE DOSAGE NUMBER 1
     Route: 065
     Dates: start: 201909, end: 202201
  40. VINCRISTINE [Suspect]
     Active Substance: VINCRISTINE
     Dosage: START DATE: SEP-2019, STOP DATE: JAN-2022, DRUG SEPARATE DOSAGE NUMBER 1
     Route: 065
     Dates: start: 201909, end: 202201
  41. AMLODIPINE [Concomitant]
     Active Substance: AMLODIPINE BESYLATE
     Indication: Hypertension
     Dosage: 10 MILLIGRAM
     Route: 065
  42. Temesta [Concomitant]
     Indication: Product used for unknown indication
     Dosage: UNK
     Route: 065
  43. CALCIUM CARBONATE\CHOLECALCIFEROL [Concomitant]
     Active Substance: CALCIUM CARBONATE\CHOLECALCIFEROL
     Indication: Prophylaxis
     Dosage: UNK
     Route: 065
  44. TAMSULOSIN HYDROCHLORIDE [Concomitant]
     Active Substance: TAMSULOSIN HYDROCHLORIDE
     Indication: Product used for unknown indication
     Dosage: UNK
     Route: 065
  45. ACETAMINOPHEN [Concomitant]
     Active Substance: ACETAMINOPHEN
     Indication: Product used for unknown indication
     Dosage: UNK
     Route: 065
  46. CHOLECALCIFEROL [Concomitant]
     Active Substance: CHOLECALCIFEROL
     Indication: Product used for unknown indication
     Dosage: UNK
     Route: 065
  47. VALACYCLOVIR HYDROCHLORIDE [Concomitant]
     Active Substance: VALACYCLOVIR HYDROCHLORIDE
     Indication: Product used for unknown indication
     Dosage: UNK
     Route: 065
  48. Acemin [Concomitant]
     Indication: Hypertension
     Dosage: 5 MILLIGRAM, DAILY
     Route: 065
  49. PANTOPRAZOLE SODIUM [Concomitant]
     Active Substance: PANTOPRAZOLE SODIUM
     Indication: Product used for unknown indication
     Dosage: UNK
     Route: 065
  50. Paspertin [Concomitant]
     Indication: Product used for unknown indication
     Dosage: UNK
     Route: 065
  51. EUTHYROX [Concomitant]
     Active Substance: LEVOTHYROXINE SODIUM
     Indication: Hypothyroidism
     Dosage: 50 MICROGRAM, DAILY
     Route: 065

REACTIONS (5)
  - Large intestine perforation [Recovered/Resolved]
  - Disease progression [Unknown]
  - Mantle cell lymphoma [Unknown]
  - Blood lactate dehydrogenase increased [Unknown]
  - Off label use [Unknown]

NARRATIVE: CASE EVENT DATE: 20230211
